FAERS Safety Report 10355590 (Version 2)
Quarter: 2014Q3

REPORT INFORMATION
  Report Type: Spontaneous
  Country: US (occurrence: None)
  Receive Date: 20140728
  Receipt Date: 20140801
  Transmission Date: 20150326
  Serious: Yes (Hospitalization)
  Sender: FDA-Public Use
  Company Number: UNT-2014-004337

PATIENT
  Age: 52 Year
  Sex: Female
  Weight: 77.1 kg

DRUGS (1)
  1. REMODULIN [Suspect]
     Active Substance: TREPROSTINIL
     Indication: PULMONARY ARTERIAL HYPERTENSION
     Dosage: 0.07125 UG/KG, CONTINUING, SUBCUTANEOUS
     Route: 058
     Dates: start: 20121220

REACTIONS (2)
  - Oxygen saturation decreased [None]
  - Malabsorption [None]

NARRATIVE: CASE EVENT DATE: 201407
